FAERS Safety Report 19462128 (Version 2)
Quarter: 2021Q3

REPORT INFORMATION
  Report Type: Spontaneous
  Country: GB (occurrence: GB)
  Receive Date: 20210625
  Receipt Date: 20210709
  Transmission Date: 20211014
  Serious: Yes (Hospitalization, Other)
  Sender: FDA-Public Use
  Company Number: GB-JNJFOC-20210648537

PATIENT
  Age: 87 Year
  Sex: Female

DRUGS (2)
  1. SIMPONI [Suspect]
     Active Substance: GOLIMUMAB
     Indication: RHEUMATOID ARTHRITIS
     Route: 058
  2. IMRALDI [Concomitant]
     Active Substance: ADALIMUMAB

REACTIONS (4)
  - Fall [Unknown]
  - Pneumonia [Unknown]
  - Hip fracture [Unknown]
  - Cardiac disorder [Unknown]
